FAERS Safety Report 21404568 (Version 2)
Quarter: 2022Q4

REPORT INFORMATION
  Report Type: Report from Study
  Country: MY (occurrence: MY)
  Receive Date: 20221003
  Receipt Date: 20221012
  Transmission Date: 20230113
  Serious: Yes (Hospitalization)
  Sender: FDA-Public Use
  Company Number: MY-JNJFOC-20220954098

PATIENT
  Age: 64 Year
  Sex: Female

DRUGS (7)
  1. AMIVANTAMAB [Suspect]
     Active Substance: AMIVANTAMAB
     Indication: Non-small cell lung cancer metastatic
     Route: 042
     Dates: start: 20211006, end: 20220420
  2. PEMETREXED [Suspect]
     Active Substance: PEMETREXED
     Indication: Non-small cell lung cancer metastatic
     Route: 042
     Dates: start: 20211006, end: 20220420
  3. CARBOPLATIN [Concomitant]
     Active Substance: CARBOPLATIN
     Indication: Non-small cell lung cancer metastatic
     Route: 042
     Dates: start: 20211006, end: 20211210
  4. GAVISCON (SODIUM ALGINATE 1000 MG AND POTASSIUM BICARBONATE 200 MG) [Concomitant]
     Indication: Chronic gastritis
     Route: 048
     Dates: start: 20210301
  5. CELECOXIB [Concomitant]
     Active Substance: CELECOXIB
     Indication: Non-cardiac chest pain
     Route: 048
     Dates: start: 20210830
  6. ENOXEPERIN [Concomitant]
     Indication: Pulmonary embolism
     Route: 058
     Dates: start: 20210901
  7. HYDROCORTISONE [Concomitant]
     Active Substance: HYDROCORTISONE
     Indication: Dermatitis acneiform
     Dosage: DOSE: 1 (UNIT NOT PROVIDED)
     Route: 061
     Dates: start: 20211013

REACTIONS (1)
  - Anaemia [Recovering/Resolving]

NARRATIVE: CASE EVENT DATE: 20220509
